FAERS Safety Report 11420036 (Version 2)
Quarter: 2015Q3

REPORT INFORMATION
  Report Type: Spontaneous
  Country: FR (occurrence: FR)
  Receive Date: 20150826
  Receipt Date: 20150910
  Transmission Date: 20151125
  Serious: Yes (Life-Threatening, Hospitalization, Other)
  Sender: FDA-Public Use
  Company Number: FR-TEVA-588041ISR

PATIENT
  Age: 89 Year
  Sex: Male
  Weight: 71.8 kg

DRUGS (6)
  1. MODIODAL [Suspect]
     Active Substance: MODAFINIL
     Indication: WAXY FLEXIBILITY
     Dosage: 100 MILLIGRAM DAILY;
     Route: 048
     Dates: start: 20150814, end: 20150817
  2. LOVENOX [Concomitant]
     Active Substance: ENOXAPARIN SODIUM
     Indication: PROPHYLAXIS
     Dosage: 1 DOSAGE FORMS DAILY;
     Route: 058
     Dates: start: 20150810, end: 20150825
  3. EXELON 3 MG [Concomitant]
     Indication: DEMENTIA
     Dosage: 6 MILLIGRAM DAILY;
     Route: 048
     Dates: start: 20150812, end: 20150825
  4. DAFALGAN [Concomitant]
     Active Substance: ACETAMINOPHEN
     Indication: PAIN
     Dosage: 6 DOSAGE FORMS DAILY;
     Route: 065
     Dates: start: 20150814, end: 20150825
  5. MOVICOL [Concomitant]
     Active Substance: POLYETHYLENE GLYCOL 3350\POTASSIUM CHLORIDE\SODIUM BICARBONATE\SODIUM CHLORIDE
     Route: 065
  6. CACIT VITAMINE D [Concomitant]
     Dosage: 1 DOSAGE FORMS DAILY;
     Route: 048
     Dates: start: 20150811, end: 20150825

REACTIONS (2)
  - Pancreatitis acute [Recovering/Resolving]
  - Hepatitis acute [Recovering/Resolving]

NARRATIVE: CASE EVENT DATE: 20150816
